FAERS Safety Report 6058226-X (Version None)
Quarter: 2009Q1

REPORT INFORMATION
  Report Type: 
  Country: None (occurrence: None)
  Receive Date: 20090130
  Receipt Date: 20090121
  Transmission Date: 20090719
  Serious: Yes (Other)
  Sender: FDA-Public Use
  Company Number: ES-JNJFOC-20090105086

PATIENT
  Age: 54 Year
  Sex: Male

DRUGS (13)
  1. RISPERIDONE [Suspect]
     Indication: PSYCHOTIC DISORDER
     Route: 048
  2. SIMVASTATIN [Interacting]
     Indication: DRUG USE FOR UNKNOWN INDICATION
  3. CYCLOSPORINE [Interacting]
     Indication: GRAFT VERSUS HOST DISEASE
     Route: 042
  4. ENALAPRIL MALEATE [Concomitant]
  5. ATENOLOL [Concomitant]
  6. ACYCLOVIR SODIUM [Concomitant]
     Indication: INFECTION PROPHYLAXIS
     Route: 042
  7. VORICONAZOL [Concomitant]
     Indication: INFECTION PROPHYLAXIS
     Route: 048
  8. METHOTREXATE [Concomitant]
     Route: 042
  9. METHOTREXATE [Concomitant]
     Indication: GRAFT VERSUS HOST DISEASE
     Route: 042
  10. MEROPENEM [Concomitant]
     Indication: STOMATITIS
     Route: 042
  11. MEROPENEM [Concomitant]
     Indication: PYREXIA
     Route: 042
  12. TEICOPLANIN [Concomitant]
     Indication: STOMATITIS
     Route: 042
  13. TEICOPLANIN [Concomitant]
     Indication: PYREXIA
     Route: 042

REACTIONS (3)
  - DRUG INTERACTION [None]
  - RENAL FAILURE ACUTE [None]
  - RHABDOMYOLYSIS [None]
